FAERS Safety Report 25103281 (Version 1)
Quarter: 2025Q1

REPORT INFORMATION
  Report Type: Report from Study
  Country: PK (occurrence: PK)
  Receive Date: 20250321
  Receipt Date: 20250321
  Transmission Date: 20250408
  Serious: Yes (Death)
  Sender: ROCHE
  Company Number: PK-ROCHE-10000209213

PATIENT
  Age: 63 Year
  Sex: Female

DRUGS (1)
  1. GAZYVA [Suspect]
     Active Substance: OBINUTUZUMAB
     Indication: Follicular lymphoma
     Route: 042
     Dates: start: 20250207, end: 20250207

REACTIONS (2)
  - Follicular lymphoma [Unknown]
  - Disease progression [Fatal]

NARRATIVE: CASE EVENT DATE: 20250207
